FAERS Safety Report 11824175 (Version 1)
Quarter: 2015Q4

REPORT INFORMATION
  Report Type: Spontaneous
  Country: DE (occurrence: DE)
  Receive Date: 20151210
  Receipt Date: 20151210
  Transmission Date: 20160305
  Serious: Yes (Other)
  Sender: FDA-Public Use
  Company Number: DE-TEVA-616307GER

PATIENT
  Sex: Male
  Weight: 75.4 kg

DRUGS (3)
  1. AZILECT [Suspect]
     Active Substance: RASAGILINE MESYLATE
     Indication: PARKINSON^S DISEASE
     Dosage: 1 MILLIGRAM DAILY;
     Route: 048
     Dates: start: 2005
  2. DOPADURA C 100/25 MG [Suspect]
     Active Substance: CARBIDOPA\LEVODOPA
     Dosage: IN THE EVENING
     Route: 048
     Dates: start: 2013
  3. DOPADURA C 100/25 MG [Suspect]
     Active Substance: CARBIDOPA\LEVODOPA
     Indication: PARKINSON^S DISEASE
     Route: 048
     Dates: start: 2013

REACTIONS (2)
  - Gastrointestinal carcinoma [Recovered/Resolved]
  - Weight decreased [Unknown]

NARRATIVE: CASE EVENT DATE: 2005
